FAERS Safety Report 7917343-7 (Version None)
Quarter: 2011Q4

REPORT INFORMATION
  Report Type: 
  Country: None (occurrence: None)
  Receive Date: 20111116
  Receipt Date: 20111109
  Transmission Date: 20120403
  Serious: Yes (Hospitalization, Other)
  Sender: FDA-Public Use
  Company Number: PHHY2010JP44834

PATIENT
  Sex: Male
  Weight: 72 kg

DRUGS (17)
  1. AFINITOR [Suspect]
     Dosage: 10 MG, PER DAY
     Route: 048
     Dates: start: 20100615, end: 20100707
  2. MICARDIS [Concomitant]
     Dosage: 80 MG, UNK
     Route: 048
  3. CEFAZOLIN SODIUM [Concomitant]
     Dosage: 3 DF, UNK
     Route: 048
  4. PURSENNID [Concomitant]
     Dosage: 12 MG, UNK
     Route: 048
  5. AFINITOR [Suspect]
     Indication: METASTATIC RENAL CELL CARCINOMA
     Dosage: 10 MG, PER DAY
     Route: 048
     Dates: start: 20100427, end: 20100608
  6. GASCON [Concomitant]
     Dosage: 120 MG, UNK
     Route: 048
  7. MUCOSTA [Concomitant]
     Dosage: 300 MG, UNK
     Route: 048
  8. ESTAZOLAM [Concomitant]
     Dosage: 1 MG, UNK
     Route: 048
  9. LIVER EXTRACT [Concomitant]
     Dosage: 2 ML, UNK
     Dates: start: 20100609, end: 20100622
  10. LOXOPROFEN [Concomitant]
  11. LORCAM [Concomitant]
     Dosage: 12 MG, UNK
     Route: 048
  12. RABEPRAZOLE SODIUM [Concomitant]
     Dosage: 10 MG, UNK
     Route: 048
  13. NAPROXEN [Concomitant]
  14. CALBLOCK [Concomitant]
     Dosage: 16 MG, UNK
     Route: 048
     Dates: start: 20100614
  15. MEROPENEM [Concomitant]
     Dosage: 1 MG, UNK
     Dates: start: 20100607, end: 20100620
  16. GABEXATE [Concomitant]
     Dosage: 300 MG, UNK
     Dates: start: 20100608, end: 20100614
  17. ZOLPIDEM [Concomitant]
     Dosage: 5 MG, UNK
     Route: 048

REACTIONS (11)
  - GLOSSITIS [None]
  - CHOLANGITIS ACUTE [None]
  - INTERSTITIAL LUNG DISEASE [None]
  - OEDEMA PERIPHERAL [None]
  - HEPATIC FUNCTION ABNORMAL [None]
  - ANAEMIA [None]
  - CELL MARKER INCREASED [None]
  - PYREXIA [None]
  - WHITE BLOOD CELL COUNT INCREASED [None]
  - STOMATITIS [None]
  - NEUTROPHIL COUNT INCREASED [None]
